FAERS Safety Report 21484358 (Version 5)
Quarter: 2023Q1

REPORT INFORMATION
  Report Type: Spontaneous
  Country: US (occurrence: US)
  Receive Date: 20221020
  Receipt Date: 20230329
  Transmission Date: 20230417
  Serious: Yes (Hospitalization, Other)
  Sender: FDA-Public Use
  Company Number: US-UCBSA-2022051873

PATIENT
  Sex: Female
  Weight: 13.3 kg

DRUGS (16)
  1. FINTEPLA [Suspect]
     Active Substance: FENFLURAMINE
     Indication: Severe myoclonic epilepsy of infancy
     Dosage: 0.7 MILLILITER, 2X/DAY (BID)
     Dates: start: 20220804
  2. FINTEPLA [Suspect]
     Active Substance: FENFLURAMINE
     Dosage: 1.5 MILLILITER, 2X/DAY (BID)
     Dates: start: 2022
  3. FINTEPLA [Suspect]
     Active Substance: FENFLURAMINE
     Dosage: 2 MILLILITER, 2X/DAY (BID)
     Dates: start: 2022
  4. FINTEPLA [Suspect]
     Active Substance: FENFLURAMINE
     Dosage: 1.5ML AM AND PM AND 1ML NOON
     Dates: start: 2022
  5. FINTEPLA [Suspect]
     Active Substance: FENFLURAMINE
     Dosage: 8.8 MILLIGRAM, ONCE DAILY (QD)
  6. FINTEPLA [Suspect]
     Active Substance: FENFLURAMINE
     Dosage: 1.8 MILLIGRAM, ONCE DAILY (QD)
     Dates: start: 20220720
  7. FINTEPLA [Suspect]
     Active Substance: FENFLURAMINE
     Dosage: 3.3MG A.M. 2.2MG AT LUNCH, 3.3MG P.M
     Dates: start: 20221213, end: 20221213
  8. FINTEPLA [Suspect]
     Active Substance: FENFLURAMINE
     Dosage: 8.8 MILLIGRAM, ONCE DAILY (QD)
     Dates: start: 20220508
  9. FINTEPLA [Suspect]
     Active Substance: FENFLURAMINE
     Dosage: 1.5ML IN THE MORNING 1 ML IN THE AFTERNOON AND 1.5ML IN THE EVENING
  10. FINTEPLA [Suspect]
     Active Substance: FENFLURAMINE
     Dosage: 1.8 ML QAM, 1 ML WITH LUNCH, 1.8 ML QPM
  11. VALPROATE SODIUM [Concomitant]
     Active Substance: VALPROATE SODIUM
     Indication: Product used for unknown indication
     Dosage: UNK
  12. VALPROATE SODIUM [Concomitant]
     Active Substance: VALPROATE SODIUM
     Dosage: 2ML AM, 1.5ML MID DAY ,1.5ML FOR 1 WEEK PM
     Dates: start: 20221213
  13. VALPROATE SODIUM [Concomitant]
     Active Substance: VALPROATE SODIUM
     Dosage: 2ML A.M 1.5ML MIDDAY 2ML P.M
     Dates: start: 20221213
  14. EPIDIOLEX [Concomitant]
     Active Substance: CANNABIDIOL
     Indication: Product used for unknown indication
     Dosage: 1.3 MILLILITER, 2X/DAY (BID)
     Dates: start: 20221213, end: 20221213
  15. KLONOPIN [Concomitant]
     Active Substance: CLONAZEPAM
     Indication: Seizure
     Dosage: 0.125 MILLIGRAM, 1 TABLET 2X/DAY (BID)
     Route: 048
     Dates: start: 20221202
  16. MIDAZOLAM [Concomitant]
     Active Substance: MIDAZOLAM
     Indication: Product used for unknown indication
     Dosage: 4 MILLIGRAM PER MINUTE, ONCE DAILY (QD)
     Route: 045

REACTIONS (9)
  - Seizure [Not Recovered/Not Resolved]
  - Seizure cluster [Recovered/Resolved]
  - Left-to-right cardiac shunt [Unknown]
  - Product use issue [Unknown]
  - Off label use [Unknown]
  - Echocardiogram abnormal [Unknown]
  - Lethargy [Not Recovered/Not Resolved]
  - Clumsiness [Not Recovered/Not Resolved]
  - Cough [Not Recovered/Not Resolved]

NARRATIVE: CASE EVENT DATE: 20220101
